FAERS Safety Report 5032207-7 (Version None)
Quarter: 2006Q2

REPORT INFORMATION
  Report Type: 
  Country: None (occurrence: None)
  Receive Date: 20060619
  Receipt Date: 20060608
  Transmission Date: 20061013
  Serious: Yes (Other)
  Sender: FDA-Public Use
  Company Number: 2006073261

PATIENT
  Age: 66 Year
  Sex: Female
  Weight: 80.7403 kg

DRUGS (1)
  1. TIKOSYN [Suspect]
     Indication: ATRIAL FIBRILLATION
     Dosage: 500 MCG (250 MCG, 1 IN 12 HR)
     Dates: start: 20060512

REACTIONS (5)
  - HEADACHE [None]
  - IMPAIRED DRIVING ABILITY [None]
  - JAW DISORDER [None]
  - VISUAL DISTURBANCE [None]
  - VISUAL FIELD DEFECT [None]
